FAERS Safety Report 15641992 (Version 1)
Quarter: 2018Q4

REPORT INFORMATION
  Report Type: Spontaneous
  Country: ES (occurrence: ES)
  Receive Date: 20181121
  Receipt Date: 20181121
  Transmission Date: 20190205
  Serious: Yes (Hospitalization)
  Sender: FDA-Public Use
  Company Number: ES-TEVA-2018-ES-976647

PATIENT
  Age: 35 Year
  Sex: Female

DRUGS (1)
  1. TRAMADOL (2389A) [Suspect]
     Active Substance: TRAMADOL
     Indication: NECK PAIN
     Dosage: 150 MILLIGRAM DAILY;
     Route: 048
     Dates: start: 20180620, end: 20180622

REACTIONS (1)
  - Haematemesis [Recovered/Resolved]

NARRATIVE: CASE EVENT DATE: 20180622
